FAERS Safety Report 20560800 (Version 2)
Quarter: 2022Q1

REPORT INFORMATION
  Report Type: Spontaneous
  Country: JP (occurrence: JP)
  Receive Date: 20220307
  Receipt Date: 20220330
  Transmission Date: 20220424
  Serious: Yes (Hospitalization)
  Sender: FDA-Public Use
  Company Number: JP-MYLANLABS-2022M1016457

PATIENT

DRUGS (1)
  1. ERYTHROCIN STEARATE [Suspect]
     Active Substance: ERYTHROMYCIN STEARATE
     Indication: Chronic respiratory disease
     Dosage: 200 MILLIGRAM, QID
     Route: 048
     Dates: start: 202202

REACTIONS (1)
  - Mental disorder [Unknown]
